FAERS Safety Report 5712102-8 (Version None)
Quarter: 2008Q2

REPORT INFORMATION
  Report Type: 
  Country: None (occurrence: None)
  Receive Date: 20080418
  Receipt Date: 20080404
  Transmission Date: 20081010
  Serious: Yes (Hospitalization)
  Sender: FDA-Public Use
  Company Number: 2008SP000804

PATIENT
  Age: 70 Year
  Sex: Female
  Weight: 61.2356 kg

DRUGS (20)
  1. XOPENEX [Suspect]
     Indication: EMPHYSEMA
     Dosage: 1.25 MG/3ML; QID; INHALATION
     Route: 055
     Dates: start: 20070101
  2. ADVAIR HFA [Concomitant]
  3. SPIRIVA [Concomitant]
  4. LASIX [Concomitant]
  5. PREDNISONE [Concomitant]
  6. POTASSIUM CHLORIDE [Concomitant]
  7. CARTIA         /00002701/ [Concomitant]
  8. VITAMINS [Concomitant]
  9. CALCIUM [Concomitant]
  10. ADVIL LIQUI-GELS [Concomitant]
  11. ASPIRIN [Concomitant]
  12. MUCINEX [Concomitant]
  13. OXYGEN [Concomitant]
  14. COUMADIN [Concomitant]
  15. ZYTREC      /00884302/ [Concomitant]
  16. FOSAMAX [Concomitant]
  17. ALBUTEROL [Concomitant]
  18. SUDAFED        /00070002/ [Concomitant]
  19. DILTIAZEM [Concomitant]
  20. ACTONEL [Concomitant]

REACTIONS (25)
  - BACTERIAL INFECTION [None]
  - CANDIDIASIS [None]
  - CHEST DISCOMFORT [None]
  - CHILLS [None]
  - CHRONIC RESPIRATORY FAILURE [None]
  - CONDITION AGGRAVATED [None]
  - CONSTIPATION [None]
  - EMPHYSEMA [None]
  - HYPERHIDROSIS [None]
  - LOBAR PNEUMONIA [None]
  - LUNG HYPERINFLATION [None]
  - LUNG INFILTRATION [None]
  - MALAISE [None]
  - NAUSEA [None]
  - PRODUCTIVE COUGH [None]
  - RESPIRATORY DISTRESS [None]
  - RESPIRATORY FAILURE [None]
  - RHONCHI [None]
  - SPEECH DISORDER [None]
  - SPUTUM PURULENT [None]
  - TACHYCARDIA [None]
  - TACHYPNOEA [None]
  - WEIGHT DECREASED [None]
  - WHEEZING [None]
  - WHITE BLOOD CELL COUNT INCREASED [None]
